FAERS Safety Report 15975625 (Version 1)
Quarter: 2019Q1

REPORT INFORMATION
  Report Type: Spontaneous
  Country: JP (occurrence: JP)
  Receive Date: 20190218
  Receipt Date: 20190218
  Transmission Date: 20190418
  Serious: Yes (Other)
  Sender: FDA-Public Use
  Company Number: JP-BAUSCH-BL-2019-004958

PATIENT
  Age: 62 Year
  Sex: Female

DRUGS (1)
  1. VISUDYNE [Suspect]
     Active Substance: VERTEPORFIN
     Indication: CHOROIDAL NEOVASCULARISATION
     Route: 042
     Dates: start: 20190125

REACTIONS (1)
  - Chorioretinopathy [Unknown]

NARRATIVE: CASE EVENT DATE: 20190208
